FAERS Safety Report 16867090 (Version 3)
Quarter: 2019Q4

REPORT INFORMATION
  Report Type: Spontaneous
  Country: DE (occurrence: DE)
  Receive Date: 20190930
  Receipt Date: 20191105
  Transmission Date: 20200122
  Serious: Yes (Other)
  Sender: FDA-Public Use
  Company Number: DE-ALIMERA SCIENCES INC.-DE-IL-2019-004480

PATIENT
  Age: 56 Year
  Sex: Male

DRUGS (7)
  1. ILUVIEN [Suspect]
     Active Substance: FLUOCINOLONE ACETONIDE
     Indication: MACULAR OEDEMA
     Dosage: 0.25 ?G, QD- RIGHT EYE
     Route: 031
     Dates: start: 201601
  2. ILUVIEN [Suspect]
     Active Substance: FLUOCINOLONE ACETONIDE
     Dosage: 0.25 ?G, QD- RIGHT EYE
     Route: 031
     Dates: start: 201310
  3. ILUVIEN [Suspect]
     Active Substance: FLUOCINOLONE ACETONIDE
     Dosage: 0.25 ?G, QD -RIGHT EYE
     Route: 031
     Dates: start: 20190722
  4. TRIAMCINOLONE [Concomitant]
     Active Substance: TRIAMCINOLONE
     Indication: UVEITIS
     Dosage: UNK
     Route: 031
  5. ILUVIEN [Suspect]
     Active Substance: FLUOCINOLONE ACETONIDE
     Indication: CHORIORETINITIS
     Dosage: 0.25 ?G, QD- RIGHT EYE-WITHDRAWN
     Route: 031
     Dates: start: 20190508
  6. INFLANEFRAN FORTE [Concomitant]
     Active Substance: PREDNISOLONE ACETATE
     Indication: UVEITIS
  7. OZURDEX [Concomitant]
     Active Substance: DEXAMETHASONE
     Indication: UVEITIS

REACTIONS (4)
  - Corneal oedema [Unknown]
  - Corneal transplant [Recovered/Resolved]
  - Device dislocation [Recovered/Resolved]
  - Medical device repositioning [Recovered/Resolved]

NARRATIVE: CASE EVENT DATE: 20190710
